FAERS Safety Report 18150056 (Version 1)
Quarter: 2020Q3

REPORT INFORMATION
  Report Type: Report from Study
  Country: None (occurrence: US)
  Receive Date: 20200814
  Receipt Date: 20200814
  Transmission Date: 20201103
  Serious: Yes (Other)
  Sender: FDA-Public Use
  Company Number: US-ABBVIE-20K-163-3521944-00

PATIENT
  Sex: Female

DRUGS (4)
  1. VITAMIN B12 [COBAMAMIDE] [Concomitant]
     Indication: PRODUCT USED FOR UNKNOWN INDICATION
  2. HUMIRA [Suspect]
     Active Substance: ADALIMUMAB
     Indication: CROHN^S DISEASE
     Route: 058
  3. HUMIRA [Suspect]
     Active Substance: ADALIMUMAB
     Route: 058
  4. HUMIRA [Suspect]
     Active Substance: ADALIMUMAB
     Route: 058

REACTIONS (7)
  - Infection [Not Recovered/Not Resolved]
  - Therapeutic response unexpected [Unknown]
  - Clostridium difficile infection [Not Recovered/Not Resolved]
  - Colonic abscess [Unknown]
  - Drug ineffective [Unknown]
  - Large intestinal obstruction [Not Recovered/Not Resolved]
  - Lung abscess [Not Recovered/Not Resolved]
